FAERS Safety Report 11615866 (Version 1)
Quarter: 2015Q4

REPORT INFORMATION
  Report Type: Spontaneous
  Country: GB (occurrence: GB)
  Receive Date: 20151009
  Receipt Date: 20151009
  Transmission Date: 20160304
  Serious: Yes (Other)
  Sender: FDA-Public Use
  Company Number: GB-GLAXOSMITHKLINE-GB2015140361

PATIENT
  Age: 80 Year
  Sex: Female
  Weight: 59 kg

DRUGS (25)
  1. ATORVASTATIN [Concomitant]
     Active Substance: ATORVASTATIN
     Indication: BLOOD CHOLESTEROL INCREASED
     Dosage: EACH NIGHT.
     Dates: start: 20141105
  2. CEFALEXIN [Concomitant]
     Active Substance: CEPHALEXIN
     Dosage: AT NIGHT FOR 1 MONTH AFTER TRIMETHOPRIM.
     Dates: start: 20141103
  3. DERMACOOL [Concomitant]
     Dates: start: 20141103
  4. SOLIFENACIN [Concomitant]
     Active Substance: SOLIFENACIN
     Dates: start: 20141127
  5. ESOMEPRAZOLE [Concomitant]
     Active Substance: ESOMEPRAZOLE
     Dates: start: 20141103
  6. DERMOVATE [Concomitant]
     Active Substance: CLOBETASOL
     Dates: start: 20141103
  7. FEXOFENADINE [Concomitant]
     Active Substance: FEXOFENADINE\FEXOFENADINE HYDROCHLORIDE
     Indication: HYPERSENSITIVITY
     Dosage: AS REQUIRED.
     Dates: start: 20150806
  8. FULTIUM-D3 [Concomitant]
     Dosage: AS DIRECTED.
     Dates: start: 20150710
  9. PRO D3 [Concomitant]
     Dosage: 5 CAPSULES STAT.
     Dates: start: 20150710, end: 20150711
  10. HYDROXYZINE [Concomitant]
     Active Substance: HYDROXYZINE\HYDROXYZINE HYDROCHLORIDE
     Indication: PRURITUS
     Dosage: AS REQUIRED.
     Dates: start: 20141103, end: 20150827
  11. SALBUTAMOL [Concomitant]
     Active Substance: ALBUTEROL
     Dates: start: 20141103
  12. COCODAMOL [Concomitant]
     Active Substance: ACETAMINOPHEN\CODEINE PHOSPHATE
     Dosage: TAKE ONE OR TWO.
     Dates: start: 20141103
  13. CROTAMITON [Concomitant]
     Active Substance: CROTAMITON
     Indication: PRURITUS
     Dosage: APPLY AS NEEDED.
     Dates: start: 20150226
  14. FLUTICASONE PROPIONATE. [Concomitant]
     Active Substance: FLUTICASONE PROPIONATE
     Dosage: 4 DROPS DAILY.
     Dates: start: 20141103
  15. FOSTAIR [Concomitant]
     Active Substance: BECLOMETHASONE\FORMOTEROL
     Dates: start: 20150910
  16. LAXIDO [Concomitant]
     Active Substance: POLYETHYLENE GLYCOL 3350\POTASSIUM CHLORIDE\SODIUM BICARBONATE\SODIUM CHLORIDE
     Dosage: ONCE OR TWICE A DAY AS REQUIRED.
     Dates: start: 20150827
  17. RELVAR ELLIPTA [Suspect]
     Active Substance: FLUTICASONE FUROATE\VILANTEROL TRIFENATATE
     Dates: start: 20150701
  18. AMITRIPTYLINE HYDROCHLORIDE. [Concomitant]
     Active Substance: AMITRIPTYLINE HYDROCHLORIDE
     Dosage: AT NIGHT.
     Dates: start: 20150710
  19. CIPROFLOXACIN. [Concomitant]
     Active Substance: CIPROFLOXACIN
     Dates: start: 20150730, end: 20150806
  20. DERMOL SHOWER (BENZALKONIUM CHLORIDE/CHLORHEXIDINE HCL/ISOPROPYL MYRIS [Concomitant]
     Dosage: TO USE AS A SOAP SUBSTITUTE.
     Dates: start: 20141103
  21. FLUTICASONE [Concomitant]
     Active Substance: FLUTICASONE\FLUTICASONE PROPIONATE
     Dates: start: 20141103, end: 20150701
  22. IBUPROFEN. [Concomitant]
     Active Substance: IBUPROFEN
     Indication: PAIN
     Dates: start: 20141103
  23. AMLODIPINE [Concomitant]
     Active Substance: AMLODIPINE BESYLATE
     Dates: start: 20141103
  24. NITROFURANTOIN. [Concomitant]
     Active Substance: NITROFURANTOIN
     Dosage: ANTIBIOTIC COURSE.
     Dates: start: 20150727
  25. TRIMETHOPRIM. [Concomitant]
     Active Substance: TRIMETHOPRIM
     Dates: start: 20141103, end: 20150827

REACTIONS (2)
  - Oral pain [Recovered/Resolved]
  - Oropharyngeal pain [Recovered/Resolved]

NARRATIVE: CASE EVENT DATE: 20150801
